FAERS Safety Report 8058041-1 (Version None)
Quarter: 2012Q1

REPORT INFORMATION
  Report Type: 
  Country: None (occurrence: None)
  Receive Date: 20120117
  Receipt Date: 20120117
  Transmission Date: 20120608
  Serious: Yes (Other)
  Sender: FDA-Public Use
  Company Number: None

PATIENT
  Sex: Female

DRUGS (1)
  1. ADDERALL 30 [Suspect]
     Dosage: XR 30MG BID
     Dates: start: 20111220, end: 20120116

REACTIONS (1)
  - GASTROINTESTINAL DISORDER [None]
